FAERS Safety Report 19205149 (Version 1)
Quarter: 2021Q2

REPORT INFORMATION
  Report Type: Spontaneous
  Country: US (occurrence: US)
  Receive Date: 20210501
  Receipt Date: 20210501
  Transmission Date: 20210717
  Serious: Yes (Death)
  Sender: FDA-Public Use
  Company Number: None

PATIENT
  Age: 23 Year
  Sex: Male

DRUGS (8)
  1. MULTIVITAMINS [Concomitant]
     Active Substance: VITAMINS
  2. TOBRAMYCIN 40MG/ML [Concomitant]
     Active Substance: TOBRAMYCIN
  3. FISH OIL [Concomitant]
     Active Substance: FISH OIL
  4. TRIKAFTA [Suspect]
     Active Substance: ELEXACAFTOR\IVACAFTOR\TEZACAFTOR
     Route: 048
  5. MONTELUKAST 10 MG [Concomitant]
     Active Substance: MONTELUKAST SODIUM
  6. ALBUTEROL HFA [Concomitant]
     Active Substance: ALBUTEROL SULFATE
  7. OMEPRAZOLE 40 MG [Concomitant]
     Active Substance: OMEPRAZOLE
  8. URODIOL 300 MG [Concomitant]

REACTIONS (1)
  - Death [None]
